FAERS Safety Report 5278392-3 (Version None)
Quarter: 2007Q1

REPORT INFORMATION
  Report Type: 
  Country: None (occurrence: None)
  Receive Date: 20070323
  Receipt Date: 20070309
  Transmission Date: 20070707
  Serious: Yes (Hospitalization, Other)
  Sender: FDA-Public Use
  Company Number: 2007VX000037

PATIENT
  Age: 53 Year
  Sex: Male

DRUGS (18)
  1. PERMAX [Suspect]
     Indication: PARKINSON'S DISEASE
     Dosage: SEE IMAGE
     Route: 048
     Dates: end: 20061010
  2. PERMAX [Suspect]
     Indication: PARKINSON'S DISEASE
     Dosage: SEE IMAGE
     Route: 048
     Dates: start: 20061205, end: 20061210
  3. PERMAX [Suspect]
     Indication: PARKINSON'S DISEASE
     Dosage: SEE IMAGE
     Route: 048
     Dates: start: 20061211
  4. DOPS [Concomitant]
  5. MADOPAR [Concomitant]
  6. OXETACAINE [Concomitant]
  7. ATARAX [Concomitant]
  8. VITANEURIN [Concomitant]
  9. PANTOL [Concomitant]
  10. PRIMPERAN INJ [Concomitant]
  11. ZANTAC [Concomitant]
  12. OMEPRAL [Concomitant]
  13. PIRETAZOL [Concomitant]
  14. PENTAZOCINE LACTATE [Concomitant]
  15. DOPASTON [Concomitant]
  16. SULPYRINE [Concomitant]
  17. FIRSTCIN [Concomitant]
  18. DANTRIUM [Concomitant]

REACTIONS (3)
  - GASTROINTESTINAL HAEMORRHAGE [None]
  - NEUROLEPTIC MALIGNANT SYNDROME [None]
  - TREATMENT NONCOMPLIANCE [None]
